FAERS Safety Report 15230174 (Version 1)
Quarter: 2018Q3

REPORT INFORMATION
  Report Type: Spontaneous
  Country: US (occurrence: US)
  Receive Date: 20180802
  Receipt Date: 20180802
  Transmission Date: 20181010
  Serious: Yes (Other)
  Sender: FDA-Public Use
  Company Number: US-ACCORD-066495

PATIENT
  Age: 64 Year
  Sex: Female

DRUGS (13)
  1. PEPCID [Concomitant]
     Active Substance: FAMOTIDINE
     Dosage: DOSE: 20
  2. GLUCOTROL XL [Concomitant]
     Active Substance: GLIPIZIDE
  3. HYDRODIURIL [Concomitant]
     Active Substance: HYDROCHLOROTHIAZIDE
  4. LISINOPRIL. [Concomitant]
     Active Substance: LISINOPRIL
  5. DECADRON [Concomitant]
     Active Substance: DEXAMETHASONE
     Dosage: DOSE: 4
     Route: 042
  6. METFORMIN [Concomitant]
     Active Substance: METFORMIN HYDROCHLORIDE
  7. BETAPACE [Concomitant]
     Active Substance: SOTALOL HYDROCHLORIDE
     Dates: end: 2017
  8. COUMADIN [Concomitant]
     Active Substance: WARFARIN SODIUM
  9. DOCETAXEL ACCORD [Suspect]
     Active Substance: DOCETAXEL
     Indication: BREAST CANCER
     Dosage: DOSE: 150
     Route: 042
     Dates: start: 20140701, end: 20140903
  10. CYTOXAN [Concomitant]
     Active Substance: CYCLOPHOSPHAMIDE
     Dosage: DOSE: 1200
     Route: 042
  11. ALOXI [Concomitant]
     Active Substance: PALONOSETRON HYDROCHLORIDE
     Dosage: DOSE: 0.25
     Route: 042
  12. BENADRYL [Concomitant]
     Active Substance: DIPHENHYDRAMINE HYDROCHLORIDE
     Dosage: DOSE: 12.5
     Route: 042
  13. ZANTAC [Concomitant]
     Active Substance: RANITIDINE HYDROCHLORIDE
     Dosage: DOSE: 150
     Route: 042

REACTIONS (1)
  - Alopecia [Not Recovered/Not Resolved]

NARRATIVE: CASE EVENT DATE: 201407
